FAERS Safety Report 18489023 (Version 1)
Quarter: 2020Q4

REPORT INFORMATION
  Report Type: Report from Study
  Country: None (occurrence: US)
  Receive Date: 20201111
  Receipt Date: 20201111
  Transmission Date: 20210114
  Serious: Yes (Other)
  Sender: FDA-Public Use
  Company Number: US-ABBVIE-20K-163-3640205-00

PATIENT
  Sex: Male

DRUGS (1)
  1. HUMIRA [Suspect]
     Active Substance: ADALIMUMAB
     Indication: CROHN^S DISEASE
     Route: 058

REACTIONS (6)
  - Cerebrovascular accident [Unknown]
  - Cataract [Unknown]
  - Visual impairment [Unknown]
  - Joint range of motion decreased [Unknown]
  - Cervical spinal cord paralysis [Unknown]
  - Spinal fusion acquired [Unknown]
